FAERS Safety Report 24569749 (Version 1)
Quarter: 2024Q4

REPORT INFORMATION
  Report Type: Spontaneous
  Country: GB (occurrence: GB)
  Receive Date: 20241031
  Receipt Date: 20241031
  Transmission Date: 20250115
  Serious: Yes (Other)
  Sender: NOVARTIS
  Company Number: GB-002147023-NVSC2024GB207712

PATIENT
  Age: 48 Year
  Sex: Female

DRUGS (1)
  1. GLIVEC [Suspect]
     Active Substance: IMATINIB MESYLATE
     Indication: Product used for unknown indication
     Dosage: 400 MG, QD
     Route: 065

REACTIONS (5)
  - Philadelphia chromosome positive [Unknown]
  - Platelet count increased [Unknown]
  - Rash erythematous [Unknown]
  - Muscle spasms [Unknown]
  - Therapy non-responder [Unknown]
